FAERS Safety Report 4393436-9 (Version None)
Quarter: 2004Q3

REPORT INFORMATION
  Report Type: 
  Country: None (occurrence: None)
  Receive Date: 20040701
  Receipt Date: 20040621
  Transmission Date: 20050211
  Serious: Yes (Other)
  Sender: FDA-Public Use
  Company Number: 2004220325IL

PATIENT
  Age: 25 Year
  Sex: Female

DRUGS (1)
  1. DOSTINEX [Suspect]
     Indication: PROLACTINOMA
     Dosage: 0.5 WEEKLY, ORAL
     Route: 048

REACTIONS (2)
  - CONDITION AGGRAVATED [None]
  - INTRACRANIAL TUMOUR HAEMORRHAGE [None]
